FAERS Safety Report 9738288 (Version 1)
Quarter: 2013Q4

REPORT INFORMATION
  Report Type: Spontaneous
  Country: US (occurrence: US)
  Receive Date: 20131208
  Receipt Date: 20131208
  Transmission Date: 20140711
  Serious: No
  Sender: FDA-Public Use
  Company Number: US-SANOFI-AVENTIS-2012SA091050

PATIENT
  Age: 76 Year
  Sex: Female

DRUGS (1)
  1. FERRLECIT [Suspect]
     Dosage: FIRST DOSE MAY HAVE BEEN ON 03 DEC 2012

REACTIONS (1)
  - Burning sensation [Unknown]
